FAERS Safety Report 21746018 (Version 1)
Quarter: 2022Q4

REPORT INFORMATION
  Report Type: Spontaneous
  Country: US (occurrence: US)
  Receive Date: 20221219
  Receipt Date: 20221219
  Transmission Date: 20230112
  Serious: Yes (Other)
  Sender: FDA-Public Use
  Company Number: US-JNJFOC-20221234730

PATIENT
  Age: 8 Decade
  Sex: Male

DRUGS (1)
  1. ZYTIGA [Suspect]
     Active Substance: ABIRATERONE ACETATE
     Indication: Product used for unknown indication
     Route: 048
     Dates: start: 20220504

REACTIONS (5)
  - Angina pectoris [Unknown]
  - Myocardial infarction [Unknown]
  - Atrioventricular block [Unknown]
  - Respiratory syncytial virus test [Unknown]
  - Off label use [Unknown]
